FAERS Safety Report 7108236-6 (Version None)
Quarter: 2010Q4

REPORT INFORMATION
  Report Type: 
  Country: None (occurrence: None)
  Receive Date: 20101117
  Receipt Date: 20101105
  Transmission Date: 20110411
  Serious: Yes (Hospitalization)
  Sender: FDA-Public Use
  Company Number: GB-ELI_LILLY_AND_COMPANY-GB201011001864

PATIENT
  Age: 59 Year
  Sex: Female

DRUGS (4)
  1. GEMCITABINE HCL [Suspect]
     Indication: LUNG NEOPLASM MALIGNANT
     Dosage: 1500 MG, UNKNOWN
     Route: 042
     Dates: start: 20100928
  2. OTHER PHARMA COMPANY INV DRUG [Suspect]
     Indication: LUNG NEOPLASM MALIGNANT
     Dates: start: 20100926, end: 20101001
  3. CARBOPLATIN [Suspect]
     Indication: LUNG NEOPLASM MALIGNANT
     Dosage: 500 MG, UNKNOWN
     Route: 042
     Dates: start: 20100928
  4. LANSOPRAZOLE [Concomitant]
     Route: 048
     Dates: start: 20100710

REACTIONS (1)
  - LOWER RESPIRATORY TRACT INFECTION [None]
